FAERS Safety Report 16262908 (Version 1)
Quarter: 2019Q2

REPORT INFORMATION
  Report Type: Report from Study
  Country: US (occurrence: US)
  Receive Date: 20190502
  Receipt Date: 20190502
  Transmission Date: 20190711
  Serious: Yes (Hospitalization)
  Sender: FDA-Public Use
  Company Number: US-ROCHE-2308486

PATIENT
  Age: 76 Year
  Sex: Male

DRUGS (12)
  1. ANTACIDS, OTHER COMBINATIONS [Concomitant]
     Active Substance: ANTACIDS NOS
     Indication: ABDOMINAL PAIN
  2. RITUXIMAB. [Suspect]
     Active Substance: RITUXIMAB
     Dosage: THIRD INFUSION
     Route: 042
     Dates: start: 20190418
  3. SOLU-MEDROL [Concomitant]
     Active Substance: METHYLPREDNISOLONE SODIUM SUCCINATE
     Route: 042
  4. RANITIDINE. [Concomitant]
     Active Substance: RANITIDINE
  5. RITUXIMAB. [Suspect]
     Active Substance: RITUXIMAB
     Indication: HAIRY CELL LEUKAEMIA
     Dosage: FIRST INFUSION
     Route: 042
     Dates: start: 20190321
  6. RITUXIMAB. [Suspect]
     Active Substance: RITUXIMAB
     Dosage: SECOND INFUSION
     Route: 042
     Dates: start: 20190404
  7. PENTOSTATIN. [Suspect]
     Active Substance: PENTOSTATIN
     Indication: HAIRY CELL LEUKAEMIA
     Route: 065
     Dates: start: 20190321
  8. FLEXERIL [Concomitant]
     Active Substance: CYCLOBENZAPRINE HYDROCHLORIDE
  9. BENADRYL [Concomitant]
     Active Substance: DIPHENHYDRAMINE HYDROCHLORIDE
  10. XANAX [Concomitant]
     Active Substance: ALPRAZOLAM
     Indication: ANXIETY
  11. TYLENOL [Concomitant]
     Active Substance: ACETAMINOPHEN
  12. DEMEROL [Concomitant]
     Active Substance: MEPERIDINE HYDROCHLORIDE

REACTIONS (1)
  - Anaphylactic reaction [Recovering/Resolving]

NARRATIVE: CASE EVENT DATE: 201904
